FAERS Safety Report 10405473 (Version 1)
Quarter: 2014Q3

REPORT INFORMATION
  Report Type: Spontaneous
  Country: TW (occurrence: None)
  Receive Date: 20140820
  Receipt Date: 20140820
  Transmission Date: 20150326
  Serious: Yes (Other)
  Sender: FDA-Public Use
  Company Number: VAL_03306_2014

PATIENT
  Age: 35 Year
  Sex: Female

DRUGS (4)
  1. RISPERIDONE. [Concomitant]
     Active Substance: RISPERIDONE
  2. BIPERIDEN [Concomitant]
     Active Substance: BIPERIDEN
  3. LORAZEPAM. [Concomitant]
     Active Substance: LORAZEPAM
  4. CARBAMAZEPINE (CARBAMAZEPINE) [Suspect]
     Active Substance: CARBAMAZEPINE
     Indication: MOOD SWINGS

REACTIONS (6)
  - Lung infiltration [None]
  - Pyrexia [None]
  - Proteinuria [None]
  - Agitation [None]
  - Leukopenia [None]
  - Affect lability [None]
